FAERS Safety Report 9853487 (Version 1)
Quarter: 2014Q1

REPORT INFORMATION
  Report Type: Spontaneous
  Country: CN (occurrence: CN)
  Receive Date: 20140129
  Receipt Date: 20140129
  Transmission Date: 20141002
  Serious: Yes (Other)
  Sender: FDA-Public Use
  Company Number: CN-GLAXOSMITHKLINE-B0943004A

PATIENT
  Age: 43 Year
  Sex: Male
  Weight: 68 kg

DRUGS (2)
  1. LAMIVUDINE-HBV [Suspect]
     Indication: VIRAL INFECTION
     Route: 048
     Dates: start: 20121018, end: 20121024
  2. ADEFOVIR DIPIVOXIL [Concomitant]
     Indication: CHRONIC HEPATITIS B
     Route: 065

REACTIONS (2)
  - Anaphylactoid reaction [Recovering/Resolving]
  - Nausea [Recovering/Resolving]
